FAERS Safety Report 18341123 (Version 1)
Quarter: 2020Q4

REPORT INFORMATION
  Report Type: Spontaneous
  Country: GB (occurrence: GB)
  Receive Date: 20201003
  Receipt Date: 20201003
  Transmission Date: 20210113
  Serious: Yes (Death, Hospitalization)
  Sender: FDA-Public Use
  Company Number: GB-TEVA-2020-GB-1240671

PATIENT
  Age: 79 Year
  Sex: Female

DRUGS (10)
  1. LANSOPRAZOLE. [Concomitant]
     Active Substance: LANSOPRAZOLE
  2. GABAPENTIN. [Concomitant]
     Active Substance: GABAPENTIN
  3. BECLOMETASONE [Concomitant]
     Active Substance: BECLOMETHASONE DIPROPIONATE
  4. FUROSEMIDE. [Concomitant]
     Active Substance: FUROSEMIDE
  5. RAMIPRIL. [Concomitant]
     Active Substance: RAMIPRIL
  6. CEFALEXIN [Concomitant]
     Active Substance: CEPHALEXIN
  7. WOCKHARDT UK AMITRIPTYLINE [Concomitant]
  8. METFORMIN [Concomitant]
     Active Substance: METFORMIN HYDROCHLORIDE
  9. SIMVASTATIN. [Concomitant]
     Active Substance: SIMVASTATIN
  10. METHOTREXATE. [Suspect]
     Active Substance: METHOTREXATE
     Indication: RHEUMATIC FEVER
     Dosage: 25 MG
     Route: 030

REACTIONS (2)
  - Sepsis [Fatal]
  - Pancytopenia [Fatal]
